FAERS Safety Report 24828643 (Version 2)
Quarter: 2025Q3

REPORT INFORMATION
  Report Type: Report from Study
  Country: TW (occurrence: TW)
  Receive Date: 20250110
  Receipt Date: 20250803
  Transmission Date: 20251021
  Serious: Yes (Hospitalization)
  Sender: ALEXION PHARMACEUTICALS
  Company Number: TW-AstraZeneca-CH-00780626A

PATIENT
  Sex: Male

DRUGS (1)
  1. DURVALUMAB [Suspect]
     Active Substance: DURVALUMAB
     Dosage: 960 MILLIGRAM, Q3W
     Dates: start: 20231230

REACTIONS (2)
  - Epinephrine decreased [Unknown]
  - Hormone level abnormal [Unknown]
